FAERS Safety Report 5122230-6 (Version None)
Quarter: 2006Q4

REPORT INFORMATION
  Report Type: 
  Country: None (occurrence: None)
  Receive Date: 20061003
  Receipt Date: 20060922
  Transmission Date: 20070319
  Serious: Yes (Other)
  Sender: FDA-Public Use
  Company Number: US-2006-028361

PATIENT
  Sex: Female

DRUGS (2)
  1. CLIMARA [Suspect]
     Indication: PREMATURE MENOPAUSE
     Dosage: 2 PATCHES 0.1 MG/D, 1X/WEEK, TRANSDERMAL
     Route: 062
  2. HORMONES AND RELATED AGENTS [Concomitant]

REACTIONS (6)
  - CHOLECYSTECTOMY [None]
  - DRUG INEFFECTIVE [None]
  - HYPERHIDROSIS [None]
  - HYSTERECTOMY [None]
  - MOOD SWINGS [None]
  - WEIGHT FLUCTUATION [None]
